FAERS Safety Report 9542983 (Version 2)
Quarter: 2013Q3

REPORT INFORMATION
  Report Type: Spontaneous
  Country: IE (occurrence: IE)
  Receive Date: 20130923
  Receipt Date: 20130925
  Transmission Date: 20140515
  Serious: Yes (Other)
  Sender: FDA-Public Use
  Company Number: IE-ROCHE-1277283

PATIENT
  Age: 51 Year
  Sex: Male

DRUGS (4)
  1. XELODA [Suspect]
     Indication: PRODUCT USED FOR UNKNOWN INDICATION
     Route: 065
     Dates: start: 20130909, end: 20130917
  2. NEXIUM [Concomitant]
     Route: 048
     Dates: start: 20130828
  3. MOTILIUM (DOMPERIDONE) [Concomitant]
     Route: 048
     Dates: start: 20130828
  4. IMODIUM [Concomitant]
     Route: 048
     Dates: start: 20130828

REACTIONS (1)
  - Dyspepsia [Unknown]
